FAERS Safety Report 19133736 (Version 2)
Quarter: 2021Q2

REPORT INFORMATION
  Report Type: Spontaneous
  Country: US (occurrence: US)
  Receive Date: 20210414
  Receipt Date: 20210423
  Transmission Date: 20210717
  Serious: Yes (Death, Hospitalization, Other)
  Sender: FDA-Public Use
  Company Number: US-ASTELLAS-2021US012940

PATIENT
  Age: 42 Year
  Sex: Male

DRUGS (1)
  1. PADCEV [Suspect]
     Active Substance: ENFORTUMAB VEDOTIN-EJFV
     Indication: TRANSITIONAL CELL CARCINOMA
     Dosage: 1.25 MG/KG, CYCLIC (D1 AND D8)
     Route: 042
     Dates: start: 20210312, end: 20210324

REACTIONS (12)
  - Fatigue [Unknown]
  - Oral mucosal eruption [Not Recovered/Not Resolved]
  - Alopecia [Unknown]
  - Nausea [Unknown]
  - Decreased appetite [Unknown]
  - Hypocalcaemia [Fatal]
  - Acute kidney injury [Fatal]
  - Rash [Not Recovered/Not Resolved]
  - Illness [Unknown]
  - Feeling abnormal [Unknown]
  - Confusional state [Unknown]
  - Systemic toxicity [Unknown]

NARRATIVE: CASE EVENT DATE: 202103
